FAERS Safety Report 22084656 (Version 2)
Quarter: 2023Q2

REPORT INFORMATION
  Report Type: Report from Study
  Country: IL (occurrence: IL)
  Receive Date: 20230310
  Receipt Date: 20230604
  Transmission Date: 20230722
  Serious: Yes (Hospitalization, Other)
  Sender: FDA-Public Use
  Company Number: IL-ABBVIE-21K-082-4161943-00

PATIENT
  Age: 75 Year
  Sex: Female
  Weight: 80 kg

DRUGS (25)
  1. VENETOCLAX [Suspect]
     Active Substance: VENETOCLAX
     Indication: Acute myeloid leukaemia
     Dosage: RAMP UP
     Route: 048
     Dates: start: 20210829, end: 20210829
  2. VENETOCLAX [Suspect]
     Active Substance: VENETOCLAX
     Indication: Acute myeloid leukaemia
     Dosage: RAMP UP
     Route: 048
     Dates: start: 20210830, end: 20210830
  3. VENETOCLAX [Suspect]
     Active Substance: VENETOCLAX
     Indication: Acute myeloid leukaemia
     Dosage: RAMP UP
     Route: 048
     Dates: start: 20210831, end: 20211221
  4. VENETOCLAX [Suspect]
     Active Substance: VENETOCLAX
     Indication: Acute myeloid leukaemia
     Dosage: 400 MILLIGRAM
     Dates: start: 20220109, end: 20220129
  5. VENETOCLAX [Suspect]
     Active Substance: VENETOCLAX
     Indication: Acute myeloid leukaemia
     Dosage: 400 MILLIGRAM
     Route: 048
     Dates: start: 20220306, end: 20220317
  6. VENETOCLAX [Suspect]
     Active Substance: VENETOCLAX
     Indication: Acute myeloid leukaemia
     Dosage: 400 MILLIGRAM
     Route: 048
     Dates: start: 20220206, end: 20220226
  7. AZACITIDINE [Suspect]
     Active Substance: AZACITIDINE
     Indication: Acute myeloid leukaemia
     Dosage: CYCLE 2
     Route: 042
     Dates: start: 20210904, end: 20210906
  8. AZACITIDINE [Suspect]
     Active Substance: AZACITIDINE
     Indication: Acute myeloid leukaemia
     Dosage: CYCLE 1
     Route: 042
     Dates: start: 20210829, end: 20210902
  9. AZACITIDINE [Suspect]
     Active Substance: AZACITIDINE
     Indication: Acute myeloid leukaemia
     Dosage: CYCLE 9
     Route: 042
     Dates: start: 20220206, end: 20220210
  10. AZACITIDINE [Suspect]
     Active Substance: AZACITIDINE
     Indication: Acute myeloid leukaemia
     Dosage: 100 MILLIGRAM?CYCLE 6
     Route: 042
     Dates: start: 20211121, end: 20211125
  11. AZACITIDINE [Suspect]
     Active Substance: AZACITIDINE
     Indication: Acute myeloid leukaemia
     Dosage: CYCLE 5
     Route: 042
     Dates: start: 20211007, end: 20211014
  12. AZACITIDINE [Suspect]
     Active Substance: AZACITIDINE
     Indication: Acute myeloid leukaemia
     Dosage: 145 MILLIGRAM?CYCLE 4
     Route: 042
     Dates: start: 20211002, end: 20211004
  13. AZACITIDINE [Suspect]
     Active Substance: AZACITIDINE
     Indication: Acute myeloid leukaemia
     Dosage: CYCLE 13
     Route: 042
     Dates: start: 20220507, end: 20220517
  14. AZACITIDINE [Suspect]
     Active Substance: AZACITIDINE
     Indication: Acute myeloid leukaemia
     Dosage: CYCLE 11
     Route: 042
     Dates: start: 202203, end: 202203
  15. AZACITIDINE [Suspect]
     Active Substance: AZACITIDINE
     Indication: Acute myeloid leukaemia
     Dosage: CYCLE 10
     Route: 042
     Dates: start: 20220212, end: 20220214
  16. AZACITIDINE [Suspect]
     Active Substance: AZACITIDINE
     Indication: Acute myeloid leukaemia
     Dosage: CYCLE 9
     Route: 042
     Dates: start: 20211225, end: 20211228
  17. AZACITIDINE [Suspect]
     Active Substance: AZACITIDINE
     Indication: Acute myeloid leukaemia
     Dosage: CYCLE 12
     Route: 042
     Dates: start: 20220407, end: 20220417
  18. AZACITIDINE [Suspect]
     Active Substance: AZACITIDINE
     Indication: Acute myeloid leukaemia
     Dosage: 145 MILLIGRAM?CYCLE 3
     Route: 042
     Dates: start: 20210929, end: 20210930
  19. AZACITIDINE [Suspect]
     Active Substance: AZACITIDINE
     Indication: Acute myeloid leukaemia
     Dosage: 100 MILLIGRAM?CYCLE 7
     Route: 042
     Dates: start: 20211127, end: 20211129
  20. AZACITIDINE [Suspect]
     Active Substance: AZACITIDINE
     Indication: Acute myeloid leukaemia
     Dosage: 100 MILLIGRAM?CYCLE 8
     Route: 042
     Dates: start: 20211222, end: 20211223
  21. ACYCLO-V [Concomitant]
     Indication: Herpes simplex
     Dates: start: 20210922
  22. ALLOPURINOL [Concomitant]
     Active Substance: ALLOPURINOL
     Indication: Hyperuricaemia
     Dates: start: 20210922
  23. CIPRODEX [Concomitant]
     Active Substance: CIPROFLOXACIN HYDROCHLORIDE\DEXAMETHASONE
     Indication: Antibiotic therapy
     Dates: start: 20150802
  24. ZALDIAR [Concomitant]
     Active Substance: ACETAMINOPHEN\TRAMADOL HYDROCHLORIDE
     Indication: Pain prophylaxis
     Dates: start: 20141228
  25. LORATADINE [Concomitant]
     Active Substance: LORATADINE
     Indication: Allergy prophylaxis
     Dates: start: 20150802

REACTIONS (6)
  - Febrile neutropenia [Recovered/Resolved]
  - Nausea [Not Recovered/Not Resolved]
  - Asthenia [Not Recovered/Not Resolved]
  - Disease progression [Unknown]
  - Neutropenia [Recovered/Resolved]
  - Pyrexia [Recovered/Resolved]

NARRATIVE: CASE EVENT DATE: 20210930
